FAERS Safety Report 9942250 (Version 2)
Quarter: 2014Q1

REPORT INFORMATION
  Report Type: Report from Study
  Country: US (occurrence: US)
  Receive Date: 20140303
  Receipt Date: 20140303
  Transmission Date: 20141002
  Serious: Yes (Hospitalization, Other)
  Sender: FDA-Public Use
  Company Number: US-ABBVIE-12P-163-0925970-00

PATIENT
  Age: 68 Year
  Sex: Male
  Weight: 115.77 kg

DRUGS (7)
  1. HUMIRA 40 MG/0.8 ML PEN [Suspect]
     Indication: RHEUMATOID ARTHRITIS
     Dates: end: 201111
  2. HUMIRA 40 MG/0.8 ML PEN [Suspect]
     Dates: start: 20120405
  3. LUMIGAN [Concomitant]
     Indication: GLAUCOMA
  4. LUMIGAN [Concomitant]
     Indication: PROPHYLAXIS
  5. LANZAPROPOL [Concomitant]
     Indication: GASTRIC DISORDER
  6. CELEBREX [Concomitant]
     Indication: RHEUMATOID ARTHRITIS
  7. METHOTREXATE [Concomitant]
     Indication: PRODUCT USED FOR UNKNOWN INDICATION

REACTIONS (3)
  - Knee arthroplasty [Recovered/Resolved]
  - Joint arthroplasty [Recovered/Resolved]
  - Hip arthroplasty [Recovered/Resolved]
